FAERS Safety Report 5938264-5 (Version None)
Quarter: 2008Q4

REPORT INFORMATION
  Report Type: 
  Country: None (occurrence: None)
  Receive Date: 20081031
  Receipt Date: 20081024
  Transmission Date: 20090506
  Serious: Yes (Other)
  Sender: FDA-Public Use
  Company Number: US-GENENTECH-270468

PATIENT
  Age: 28 Year
  Sex: Male

DRUGS (1)
  1. RITUXAN [Suspect]
     Indication: IDIOPATHIC THROMBOCYTOPENIC PURPURA
     Dosage: UNK
     Route: 042
     Dates: start: 20081017

REACTIONS (4)
  - BLOOD PRESSURE INCREASED [None]
  - NASAL CONGESTION [None]
  - NAUSEA [None]
  - PERICARDITIS [None]
